FAERS Safety Report 24857295 (Version 2)
Quarter: 2025Q4

REPORT INFORMATION
  Report Type: Report from Study
  Country: CA (occurrence: CA)
  Receive Date: 20250117
  Receipt Date: 20251217
  Transmission Date: 20260117
  Serious: Yes (Other)
  Sender: NOVARTIS
  Company Number: CA-002147023-NVSC2024CA245598

PATIENT
  Age: 65 Year
  Sex: Female

DRUGS (1)
  1. LEQVIO [Suspect]
     Active Substance: INCLISIRAN SODIUM
     Indication: Arteriosclerosis
     Dosage: 284 MG/ 1.5 ML, OTHER (BASELINE, 3 MONTH THEN 6 MONTH THEREAFTER)
     Route: 058
     Dates: start: 20240321

REACTIONS (6)
  - Urinary tract infection [Not Recovered/Not Resolved]
  - Kidney infection [Not Recovered/Not Resolved]
  - Nausea [Unknown]
  - Back pain [Unknown]
  - Urine odour abnormal [Unknown]
  - Infection [Recovering/Resolving]

NARRATIVE: CASE EVENT DATE: 20241201
